FAERS Safety Report 4667970-8 (Version None)
Quarter: 2005Q2

REPORT INFORMATION
  Report Type: 
  Country: None (occurrence: None)
  Receive Date: 20050520
  Receipt Date: 20050511
  Transmission Date: 20051028
  Serious: Yes (Death)
  Sender: FDA-Public Use
  Company Number: 2005SE02872

PATIENT
  Age: 3 Month
  Sex: Female

DRUGS (1)
  1. XYLOCARD [Suspect]
     Indication: CONVULSION
     Route: 042

REACTIONS (3)
  - ACCIDENTAL OVERDOSE [None]
  - CARDIAC FAILURE ACUTE [None]
  - MEDICATION ERROR [None]
